FAERS Safety Report 19315525 (Version 2)
Quarter: 2021Q4

REPORT INFORMATION
  Report Type: Spontaneous
  Country: FR (occurrence: FR)
  Receive Date: 20210527
  Receipt Date: 20211011
  Transmission Date: 20220304
  Serious: Yes (Hospitalization)
  Sender: FDA-Public Use
  Company Number: None

PATIENT
  Age: 53 Year
  Sex: Male
  Weight: 124 kg

DRUGS (3)
  1. METRONIDAZOLE [Suspect]
     Active Substance: METRONIDAZOLE
     Indication: Biliary abscess
     Dosage: 500 MG 3X/D
     Route: 065
     Dates: start: 20210331, end: 20210504
  2. CEFTRIAXONE [Suspect]
     Active Substance: CEFTRIAXONE
     Indication: Biliary abscess
     Dosage: 2 G/D
     Route: 042
     Dates: start: 20210331, end: 20210504
  3. OFLOXACIN [Suspect]
     Active Substance: OFLOXACIN
     Indication: Biliary abscess
     Dosage: 200 MG 2XD
     Route: 048
     Dates: start: 20210331, end: 20210504

REACTIONS (1)
  - Cholestasis [Not Recovered/Not Resolved]

NARRATIVE: CASE EVENT DATE: 20210503
